FAERS Safety Report 17967529 (Version 1)
Quarter: 2020Q3

REPORT INFORMATION
  Report Type: Spontaneous
  Country: GB (occurrence: GB)
  Receive Date: 20200701
  Receipt Date: 20200701
  Transmission Date: 20201103
  Serious: Yes (Other)
  Sender: FDA-Public Use
  Company Number: GB-ADVANZ PHARMA-202006006770

PATIENT

DRUGS (7)
  1. DOXYCYCLINE. [Suspect]
     Active Substance: DOXYCYCLINE
     Indication: MORPHOEA
     Dosage: UNK
     Route: 048
  2. METHOTREXATE. [Suspect]
     Active Substance: METHOTREXATE
     Indication: MORPHOEA
     Dosage: 10 MG, WEEKLY
     Route: 058
  3. CYCLIZINE [Suspect]
     Active Substance: CYCLIZINE
     Dosage: UNK, INJECTION
     Route: 058
  4. PREDNISOLONE. [Suspect]
     Active Substance: PREDNISOLONE
     Indication: MORPHOEA
     Dosage: UNK
     Route: 048
  5. PREDNISOLONE. [Suspect]
     Active Substance: PREDNISOLONE
     Indication: DYSTROPHIC CALCIFICATION
  6. DOXYCYCLINE. [Suspect]
     Active Substance: DOXYCYCLINE
     Indication: DYSTROPHIC CALCIFICATION
  7. METHOTREXATE. [Suspect]
     Active Substance: METHOTREXATE
     Indication: DYSTROPHIC CALCIFICATION

REACTIONS (3)
  - Morphoea [Unknown]
  - Therapy non-responder [Unknown]
  - Dystrophic calcification [Unknown]
